FAERS Safety Report 4994054-1 (Version None)
Quarter: 2006Q2

REPORT INFORMATION
  Report Type: 
  Country: None (occurrence: None)
  Receive Date: 20060505
  Receipt Date: 20051125
  Transmission Date: 20061013
  Serious: Yes (Other)
  Sender: FDA-Public Use
  Company Number: PHFR2005GB03862

PATIENT
  Age: 60 Year
  Sex: Male
  Weight: 101.6 kg

DRUGS (1)
  1. ZOMETA [Suspect]
     Route: 065

REACTIONS (4)
  - OSTEONECROSIS [None]
  - SURGERY [None]
  - TEETH BRITTLE [None]
  - TOOTH LOSS [None]
